FAERS Safety Report 6927975-0 (Version None)
Quarter: 2010Q3

REPORT INFORMATION
  Report Type: 
  Country: None (occurrence: None)
  Receive Date: 20100816
  Receipt Date: 20100816
  Transmission Date: 20110219
  Serious: Yes (Death)
  Sender: FDA-Public Use
  Company Number: None

PATIENT
  Age: 19 Year
  Sex: Female
  Weight: 40.8237 kg

DRUGS (3)
  1. LAMOTRIGINE [Suspect]
     Indication: BIPOLAR DISORDER
     Dosage: 2 AT BEDTIME PO
     Route: 048
     Dates: start: 20090717, end: 20091029
  2. LAMOTRIGINE [Suspect]
     Indication: EPILEPSY
     Dosage: 2 AT BEDTIME PO
     Route: 048
     Dates: start: 20090717, end: 20091029
  3. LAMOTRIGINE [Suspect]

REACTIONS (1)
  - CONVULSION [None]
